FAERS Safety Report 6680761-1 (Version None)
Quarter: 2010Q2

REPORT INFORMATION
  Report Type: 
  Country: None (occurrence: None)
  Receive Date: 20100414
  Receipt Date: 20100402
  Transmission Date: 20101027
  Serious: Yes (Hospitalization, Other)
  Sender: FDA-Public Use
  Company Number: US-PFIZER INC-2008030305

PATIENT
  Sex: Male
  Weight: 27 kg

DRUGS (4)
  1. SOMATROPIN [Suspect]
     Indication: HYPOPITUITARISM
     Dosage: 0.7 MG, 1X/DAY
     Route: 058
     Dates: start: 20070312, end: 20091216
  2. LEVOXYL [Concomitant]
     Indication: HYPOTHYROIDISM
     Route: 048
     Dates: start: 20050801
  3. CORTEF [Concomitant]
     Indication: ADRENAL INSUFFICIENCY
     Route: 048
     Dates: start: 20050801
  4. DDAVP [Concomitant]
     Indication: DIABETES INSIPIDUS
     Route: 048
     Dates: start: 20050801

REACTIONS (2)
  - CRANIOPHARYNGIOMA [None]
  - NEOPLASM RECURRENCE [None]
